FAERS Safety Report 9581848 (Version 1)
Quarter: 2013Q4

REPORT INFORMATION
  Report Type: Report from Study
  Country: US (occurrence: US)
  Receive Date: 20131002
  Receipt Date: 20131002
  Transmission Date: 20140711
  Serious: Yes (Other)
  Sender: FDA-Public Use
  Company Number: US-US-EMD SERONO, INC.-7240424

PATIENT
  Sex: Female

DRUGS (2)
  1. REBIF [Suspect]
     Indication: MULTIPLE SCLEROSIS
     Route: 058
     Dates: start: 20061020, end: 20080825
  2. REBIF [Suspect]
     Route: 058
     Dates: start: 20091005, end: 20110531

REACTIONS (2)
  - Autoimmune thyroiditis [Unknown]
  - Injection site urticaria [Unknown]
